FAERS Safety Report 13028307 (Version 1)
Quarter: 2016Q4

REPORT INFORMATION
  Report Type: Spontaneous
  Country: TR (occurrence: TR)
  Receive Date: 20161214
  Receipt Date: 20161214
  Transmission Date: 20170207
  Serious: Yes (Death, Other)
  Sender: FDA-Public Use
  Company Number: TR-BAYER-2016-112446

PATIENT
  Age: 76 Year
  Sex: Male

DRUGS (1)
  1. STIVARGA [Suspect]
     Active Substance: REGORAFENIB
     Dosage: UNK
     Dates: start: 2016, end: 2016

REACTIONS (7)
  - Eye swelling [None]
  - Abdominal distension [None]
  - Colon cancer [Fatal]
  - Peripheral swelling [None]
  - Laboratory test abnormal [None]
  - Xerophthalmia [None]
  - Oedema [None]

NARRATIVE: CASE EVENT DATE: 2016
